FAERS Safety Report 6944685-4 (Version None)
Quarter: 2010Q3

REPORT INFORMATION
  Report Type: 
  Country: None (occurrence: None)
  Receive Date: 20100827
  Receipt Date: 20100820
  Transmission Date: 20110219
  Serious: Yes (Death, Other)
  Sender: FDA-Public Use
  Company Number: AR-BAYER-201018157LA

PATIENT
  Age: 59 Year
  Sex: Male

DRUGS (4)
  1. CAMPATH [Suspect]
     Indication: T-CELL CHRONIC LYMPHOCYTIC LEUKAEMIA
     Route: 058
  2. CAMPATH [Suspect]
     Route: 065
  3. CAMPATH [Suspect]
     Route: 065
  4. UNKNOWN DRUG [Concomitant]
     Indication: ANTIVIRAL PROPHYLAXIS

REACTIONS (1)
  - RENAL FAILURE [None]
